FAERS Safety Report 9606278 (Version 1)
Quarter: 2013Q4

REPORT INFORMATION
  Report Type: Spontaneous
  Country: US (occurrence: US)
  Receive Date: 20131008
  Receipt Date: 20131008
  Transmission Date: 20140711
  Serious: No
  Sender: FDA-Public Use
  Company Number: US-AMGEN-USASP2013046187

PATIENT
  Age: 74 Year
  Sex: Female

DRUGS (10)
  1. PROLIA [Suspect]
     Indication: OSTEOPOROSIS POSTMENOPAUSAL
     Dosage: UNK
     Dates: start: 201304
  2. SYNTHROID [Concomitant]
     Dosage: 0.137 MUG, QD
  3. WARFARIN [Concomitant]
  4. LIPITOR [Concomitant]
  5. REMERON [Concomitant]
     Dosage: 7.5 UNK, UNK
     Dates: start: 201211
  6. VITAMIN D                          /00107901/ [Concomitant]
  7. MIRALAX                            /00754501/ [Concomitant]
  8. CALTRATE                           /00944201/ [Concomitant]
     Dosage: 1200 UNK, UNK
  9. FLUDROCORTISONE [Concomitant]
     Dosage: 0.1 UNK, UNK
  10. AMIODARONE [Concomitant]
     Dosage: 200 UNK, UNK

REACTIONS (2)
  - Blood thyroid stimulating hormone increased [Unknown]
  - Lethargy [Recovering/Resolving]
